FAERS Safety Report 5155758-3 (Version None)
Quarter: 2006Q4

REPORT INFORMATION
  Report Type: 
  Country: None (occurrence: None)
  Receive Date: 20061113
  Receipt Date: 20061101
  Transmission Date: 20070319
  Serious: Yes (Hospitalization)
  Sender: FDA-Public Use
  Company Number: 200611AGG00507

PATIENT
  Age: 74 Year
  Sex: Female

DRUGS (3)
  1. AGGRASTAT [Suspect]
  2. INTEGRILIN [Suspect]
  3. REOPRO [Suspect]

REACTIONS (4)
  - AUTOIMMUNE THROMBOCYTOPENIA [None]
  - BLOOD SODIUM DECREASED [None]
  - CARDIAC DISORDER [None]
  - EOSINOPHIL COUNT DECREASED [None]
